FAERS Safety Report 18312777 (Version 1)
Quarter: 2020Q3

REPORT INFORMATION
  Report Type: Spontaneous
  Country: FR (occurrence: FR)
  Receive Date: 20200925
  Receipt Date: 20200925
  Transmission Date: 20201103
  Serious: Yes (Hospitalization)
  Sender: FDA-Public Use
  Company Number: FR-TEVA-2020-FR-1830302

PATIENT
  Age: 53 Year
  Sex: Male

DRUGS (4)
  1. KETOPROFENE [Suspect]
     Active Substance: KETOPROFEN
     Indication: TOXICITY TO VARIOUS AGENTS
     Dosage: UNIT DOSE 10DF
     Route: 048
     Dates: start: 20200816, end: 20200816
  2. THIOCOLCHICOSIDE [Suspect]
     Active Substance: THIOCOLCHICOSIDE
     Indication: TOXICITY TO VARIOUS AGENTS
     Dosage: UNIT DOSE 4DF
     Route: 048
     Dates: start: 20200816, end: 20200816
  3. PARACETAMOL [Suspect]
     Active Substance: ACETAMINOPHEN
     Indication: TOXICITY TO VARIOUS AGENTS
     Dosage: UNIT DOSE 8GM
     Route: 048
     Dates: start: 20200816, end: 20200816
  4. TRAMADOL BASE [Suspect]
     Active Substance: TRAMADOL
     Indication: TOXICITY TO VARIOUS AGENTS
     Dosage: UNIT DOSE 750MG
     Route: 048
     Dates: start: 20200816, end: 20200816

REACTIONS (2)
  - Vomiting [Recovered/Resolved]
  - Analgesic drug level increased [Recovering/Resolving]

NARRATIVE: CASE EVENT DATE: 20200816
